FAERS Safety Report 23255536 (Version 1)
Quarter: 2023Q4

REPORT INFORMATION
  Report Type: Spontaneous
  Country: CN (occurrence: CN)
  Receive Date: 20231203
  Receipt Date: 20231203
  Transmission Date: 20240110
  Serious: Yes (Other)
  Sender: FDA-Public Use
  Company Number: CN-PFIZER INC-202300423068

PATIENT
  Sex: Male

DRUGS (10)
  1. IDARUBICIN HYDROCHLORIDE [Suspect]
     Active Substance: IDARUBICIN HYDROCHLORIDE
     Dosage: 20 MG ON D1, 20 MG ON D2 AND 10 MG ON D3
     Dates: start: 20230427
  2. IDARUBICIN HYDROCHLORIDE [Suspect]
     Active Substance: IDARUBICIN HYDROCHLORIDE
     Dosage: 20 MG ON D1, 20 MG ON D2 AND 10 MG ON D3
     Dates: start: 20230602
  3. VINDESINE [Suspect]
     Active Substance: VINDESINE
     Dosage: 4 MG ON D1 AND D8
     Dates: start: 20230427
  4. VINDESINE [Suspect]
     Active Substance: VINDESINE
     Dosage: 4 MG ON D1
     Dates: start: 20230602
  5. CYCLOPHOSPHAMIDE [Suspect]
     Active Substance: CYCLOPHOSPHAMIDE
     Dosage: 1.5 G ON D1
     Dates: start: 20230427
  6. CYCLOPHOSPHAMIDE [Suspect]
     Active Substance: CYCLOPHOSPHAMIDE
     Dosage: 1.4 G ON D1
     Dates: start: 20230602
  7. PEGASPARGASE [Suspect]
     Active Substance: PEGASPARGASE
     Dosage: 3750 U ON D18
     Dates: start: 20230427
  8. PEGASPARGASE [Suspect]
     Active Substance: PEGASPARGASE
     Dosage: 3750 U ON D4
     Dates: start: 20230602
  9. DEXAMETHASONE [Suspect]
     Active Substance: DEXAMETHASONE
     Dosage: 10 MG FROM D1 TO D14
     Dates: start: 20230427
  10. DEXAMETHASONE [Suspect]
     Active Substance: DEXAMETHASONE
     Dosage: 10 MG FROM D1 TO D7
     Dates: start: 20230602

REACTIONS (12)
  - Tumour lysis syndrome [Unknown]
  - Drug-induced liver injury [Unknown]
  - Pneumonia fungal [Unknown]
  - Agranulocytosis [Unknown]
  - Myelosuppression [Unknown]
  - Escherichia bacteraemia [Unknown]
  - Anal infection [Unknown]
  - Palpitations [Unknown]
  - Fatigue [Unknown]
  - Pyrexia [Unknown]
  - Diarrhoea [Unknown]
  - Anaemia [Unknown]
